FAERS Safety Report 7774386-4 (Version None)
Quarter: 2011Q3

REPORT INFORMATION
  Report Type: 
  Country: None (occurrence: None)
  Receive Date: 20110921
  Receipt Date: 20110905
  Transmission Date: 20111222
  Serious: Yes (Other)
  Sender: FDA-Public Use
  Company Number: COL_09731_2011

PATIENT
  Age: 48 Year
  Sex: Male

DRUGS (3)
  1. OMEPRAZOLE [Concomitant]
  2. PROTHIADEN [Concomitant]
  3. DURAPHAT UNSPECIFIED TOOTHPASTE [Suspect]
     Indication: ENAMEL ANOMALY
     Dosage: NI/NI/ ORAL
     Route: 048
     Dates: start: 20110125, end: 20110128

REACTIONS (3)
  - HYPOAESTHESIA ORAL [None]
  - SPEECH DISORDER [None]
  - MASTICATION DISORDER [None]
